FAERS Safety Report 7055449-8 (Version None)
Quarter: 2010Q4

REPORT INFORMATION
  Report Type: 
  Country: None (occurrence: None)
  Receive Date: 20101021
  Receipt Date: 20101006
  Transmission Date: 20110411
  Serious: Yes (Death)
  Sender: FDA-Public Use
  Company Number: FR-BIOGENIDEC-2010BI006198

PATIENT
  Age: 37 Year
  Sex: Female

DRUGS (2)
  1. TYSABRI [Suspect]
     Indication: RELAPSING-REMITTING MULTIPLE SCLEROSIS
     Route: 042
     Dates: start: 20080601, end: 20100210
  2. INFLUENZA H1N1 VACCINE [Concomitant]
     Dates: start: 20091101, end: 20091101

REACTIONS (18)
  - ABNORMAL BEHAVIOUR [None]
  - ACTINOMYCES TEST POSITIVE [None]
  - ACTINOMYCOSIS [None]
  - ACUTE DISSEMINATED ENCEPHALOMYELITIS [None]
  - BLADDER DYSFUNCTION [None]
  - BRAIN DEATH [None]
  - BRONCHITIS [None]
  - COMA [None]
  - GENITAL INFECTION FEMALE [None]
  - HEADACHE [None]
  - LARYNGITIS [None]
  - LEUKOENCEPHALOPATHY [None]
  - LUNG DISORDER [None]
  - MENINGITIS BACTERIAL [None]
  - MYCOBACTERIAL INFECTION [None]
  - PHOTOPHOBIA [None]
  - PYELONEPHRITIS [None]
  - RELAPSING-REMITTING MULTIPLE SCLEROSIS [None]
